FAERS Safety Report 8936998 (Version 1)
Quarter: 2012Q4

REPORT INFORMATION
  Report Type: 
  Country: BE (occurrence: BE)
  Receive Date: 20121130
  Receipt Date: 20121130
  Transmission Date: 20130627
  Serious: Yes (Other)
  Sender: FDA-Public Use
  Company Number: BE-BAXTER-2012BAX017720

PATIENT

DRUGS (1)
  1. CHLORURE DE SODIUM 0,9%, BAXTER [Suspect]
     Indication: VENTRICULAR DRAINAGE
     Route: 065
     Dates: start: 20120914

REACTIONS (1)
  - Laboratory test interference [Unknown]
